FAERS Safety Report 24680737 (Version 1)
Quarter: 2024Q4

REPORT INFORMATION
  Report Type: Spontaneous
  Country: US (occurrence: US)
  Receive Date: 20241129
  Receipt Date: 20241129
  Transmission Date: 20250115
  Serious: Yes (Other)
  Sender: SANDOZ
  Company Number: US-MLMSERVICE-20241115-PI257848-00249-1

PATIENT
  Age: 64 Year
  Sex: Female

DRUGS (4)
  1. BEVACIZUMAB [Suspect]
     Active Substance: BEVACIZUMAB
     Indication: Colon cancer stage II
     Dosage: UNK, FOR 6 MONTHS, THEN MAINTAINED ON BEV, RESUMPTION OF BEV
     Route: 065
  2. OXALIPLATIN [Suspect]
     Active Substance: OXALIPLATIN
     Indication: Colon cancer stage II
     Dosage: UNK, FOLFOX FOR 6 MONTHS, RESUMPTION OF FOLFOX
     Route: 065
  3. FLUOROURACIL [Concomitant]
     Active Substance: FLUOROURACIL
     Indication: Colon cancer stage II
     Dosage: UNK, FOLFOX FOR 6 MONTHS, THEN MAINTAINED ON 5 FU, RESUMPTION OF FOLFOX
     Route: 065
  4. LEUCOVORIN [Concomitant]
     Active Substance: LEUCOVORIN\LEUCOVORIN CALCIUM
     Indication: Colon cancer stage II
     Dosage: UNK, FOLFOX FOR 6 MONTHS, RESUMPTION OF FOLFOX
     Route: 065

REACTIONS (3)
  - Thrombotic microangiopathy [Recovered/Resolved]
  - Renal tubular injury [Recovered/Resolved]
  - Microangiopathic haemolytic anaemia [Recovering/Resolving]
